FAERS Safety Report 6818193-5 (Version None)
Quarter: 2010Q3

REPORT INFORMATION
  Report Type: 
  Country: None (occurrence: None)
  Receive Date: 20100706
  Receipt Date: 20070402
  Transmission Date: 20110219
  Serious: No
  Sender: FDA-Public Use
  Company Number: US-PFIZER INC-2007027247

PATIENT
  Sex: Male
  Weight: 40.82 kg

DRUGS (2)
  1. AZITHROMYCIN [Suspect]
     Indication: SINUSITIS
     Dates: start: 20070402
  2. CLARITIN [Concomitant]

REACTIONS (1)
  - VOMITING [None]
